FAERS Safety Report 18940813 (Version 10)
Quarter: 2021Q4

REPORT INFORMATION
  Report Type: Report from Study
  Country: US (occurrence: US)
  Receive Date: 20210225
  Receipt Date: 20211006
  Transmission Date: 20220304
  Serious: No
  Sender: FDA-Public Use
  Company Number: NVSC2021US036534

PATIENT
  Sex: Male

DRUGS (1)
  1. KESIMPTA [Suspect]
     Active Substance: OFATUMUMAB
     Indication: Relapsing multiple sclerosis
     Dosage: UNK
     Route: 058

REACTIONS (10)
  - Feeling abnormal [Unknown]
  - Influenza like illness [Unknown]
  - Body temperature increased [Unknown]
  - Feeling cold [Unknown]
  - Migraine [Unknown]
  - B-lymphocyte count increased [Unknown]
  - Injection site rash [Unknown]
  - Fatigue [Unknown]
  - Injection site pain [Unknown]
  - Product availability issue [Unknown]
